FAERS Safety Report 6397467-9 (Version None)
Quarter: 2009Q4

REPORT INFORMATION
  Report Type: 
  Country: None (occurrence: None)
  Receive Date: 20091012
  Receipt Date: 20091009
  Transmission Date: 20100525
  Serious: Yes (Life-Threatening, Hospitalization, Other)
  Sender: FDA-Public Use
  Company Number: PHHY2009BR43735

PATIENT
  Age: 71 Year
  Sex: Male

DRUGS (4)
  1. RASILEZ [Suspect]
     Indication: HYPERTENSION
     Dosage: 150 MG, QD
     Route: 048
     Dates: start: 20090401, end: 20090401
  2. RASILEZ [Suspect]
     Indication: PROTEINURIA
  3. AMARYL [Concomitant]
  4. METFORMIN HYDROCHLORIDE [Concomitant]

REACTIONS (1)
  - HYPERTENSION [None]
